FAERS Safety Report 9610977 (Version 2)
Quarter: 2013Q4

REPORT INFORMATION
  Report Type: Spontaneous
  Country: US (occurrence: US)
  Receive Date: 20131009
  Receipt Date: 20131009
  Transmission Date: 20140711
  Serious: Yes (Hospitalization, Other)
  Sender: FDA-Public Use
  Company Number: US-SA-RENA-1002174

PATIENT
  Age: 88 Year
  Sex: Male
  Weight: 64 kg

DRUGS (7)
  1. RENVELA [Suspect]
     Indication: HYPERPHOSPHATAEMIA
     Dosage: UNK (DOSE TITRATED)
     Route: 048
     Dates: start: 2011, end: 201307
  2. RENVELA [Suspect]
     Indication: HYPERPHOSPHATAEMIA
     Dosage: 9.6 G, QD (THREE TABLETS WITH MELAS AND ONE SNACK
     Route: 048
     Dates: start: 201308, end: 20130911
  3. CYANOCOBALAMIN [Concomitant]
     Dosage: DOSE:1000 MICROGRAM(S)/MILLILITRE
     Route: 030
  4. NITROSTAT [Concomitant]
     Indication: CHEST PAIN
     Route: 060
  5. VITAMIN C [Concomitant]
     Route: 048
  6. LEVOTHYROXINE [Concomitant]
     Route: 048
  7. DILANTIN [Concomitant]
     Dosage: 3 TABLETS AT BEDTIME
     Route: 048

REACTIONS (4)
  - Headache [Recovered/Resolved]
  - Headache [Not Recovered/Not Resolved]
  - Thoracic cavity drainage [Unknown]
  - Abdominal discomfort [Not Recovered/Not Resolved]
